FAERS Safety Report 4746543-2 (Version None)
Quarter: 2005Q3

REPORT INFORMATION
  Report Type: 
  Country: None (occurrence: None)
  Receive Date: 20050815
  Receipt Date: 20050802
  Transmission Date: 20060218
  Serious: Yes (Other)
  Sender: FDA-Public Use
  Company Number: HQWYE664302AUG05

PATIENT
  Age: 24 Year
  Sex: Female

DRUGS (1)
  1. NEOVLAR(LEVONORGESTREL/ETHINYL ESTRADIOL) [Suspect]
     Indication: ORAL CONTRACEPTION
     Dosage: 1 TAB 1X PER 1 DAY, ORAL
     Route: 048
     Dates: start: 20050601, end: 20050601

REACTIONS (3)
  - ABORTION SPONTANEOUS [None]
  - DRUG EXPOSURE DURING PREGNANCY [None]
  - VAGINAL HAEMORRHAGE [None]
